FAERS Safety Report 11090028 (Version 1)
Quarter: 2015Q2

REPORT INFORMATION
  Report Type: Report from Study
  Country: JP (occurrence: JP)
  Receive Date: 20150505
  Receipt Date: 20150505
  Transmission Date: 20150821
  Serious: Yes (Hospitalization)
  Sender: FDA-Public Use
  Company Number: JP-UCBSA-2014011176

PATIENT
  Age: 79 Year
  Sex: Male
  Weight: 63 kg

DRUGS (17)
  1. LOXONIN [Concomitant]
     Active Substance: LOXOPROFEN SODIUM
     Dosage: UNK
     Route: 048
  2. BAKTAR [Concomitant]
     Active Substance: SULFAMETHOXAZOLE\TRIMETHOPRIM
     Dosage: UNK
     Route: 048
  3. FUNGIZONE [Concomitant]
     Active Substance: AMPHOTERICIN B
     Dosage: UNK
     Route: 048
     Dates: start: 20140206, end: 20140430
  4. AMLODIN [Concomitant]
     Active Substance: AMLODIPINE BESYLATE
     Dosage: DAILY DOSE: 5 MG
     Route: 048
  5. POSTERISAN [Concomitant]
     Active Substance: LIDOCAINE
     Dosage: DAILY DOSE: 300 MG
     Route: 048
  6. NASONEX [Concomitant]
     Active Substance: MOMETASONE FUROATE
     Dosage: DAILY DOSE: 50 MICRO GRAM
     Route: 045
  7. RIMATIL [Concomitant]
     Active Substance: BUCILLAMINE
     Indication: PRODUCT USED FOR UNKNOWN INDICATION
     Dosage: DAILY DOSE: 100 MG
     Route: 048
  8. URSO [Concomitant]
     Active Substance: URSODIOL
     Indication: PRODUCT USED FOR UNKNOWN INDICATION
     Dosage: DAILY DOSE: 800 MG
     Route: 048
  9. DIQUAS [Concomitant]
     Active Substance: DIQUAFOSOL TETRASODIUM
     Dosage: DAILY DOSE: 6 DF
     Route: 047
  10. EVIPROSTAT N [Concomitant]
     Active Substance: HERBALS
     Dosage: DAILY DOSE: 2 DF
     Route: 048
  11. URIEF [Concomitant]
     Active Substance: SILODOSIN
     Dosage: DAILY DOSE: 8 MG
     Route: 048
  12. FUNGIZONE [Concomitant]
     Active Substance: AMPHOTERICIN B
     Indication: PRODUCT USED FOR UNKNOWN INDICATION
     Dosage: DAILY DOSE: 400 MG
     Route: 048
     Dates: end: 20140205
  13. ACINON [Concomitant]
     Active Substance: NIZATIDINE
     Dosage: DAILY DOSE: 300 MG
     Route: 048
  14. HYDROCORTISONE. [Concomitant]
     Active Substance: HYDROCORTISONE
     Dosage: DAILY DOSE: 4 G
     Route: 054
  15. CERTOLIZUMAB PEGOL RA [Suspect]
     Active Substance: CERTOLIZUMAB PEGOL
     Indication: RHEUMATOID ARTHRITIS
     Dosage: 400 MG, EV 2 WEEKS(QOW)
     Route: 058
     Dates: start: 20140109, end: 20140206
  16. CERTOLIZUMAB PEGOL RA [Suspect]
     Active Substance: CERTOLIZUMAB PEGOL
     Dosage: 200 MG, EV 2 WEEKS(QOW)
     Route: 058
     Dates: start: 20140220, end: 20140320
  17. HYALEIN [Concomitant]
     Active Substance: HYALURONATE SODIUM
     Dosage: DAILY DOSE: 6 DF
     Route: 047

REACTIONS (4)
  - Eczema asteatotic [Recovering/Resolving]
  - Rheumatoid arthritis [Recovered/Resolved]
  - Seborrhoeic dermatitis [Recovering/Resolving]
  - Blood beta-D-glucan increased [Recovering/Resolving]

NARRATIVE: CASE EVENT DATE: 20140206
